FAERS Safety Report 22201379 (Version 9)
Quarter: 2025Q1

REPORT INFORMATION
  Report Type: Report from Study
  Country: CA (occurrence: CA)
  Receive Date: 20230412
  Receipt Date: 20250303
  Transmission Date: 20250408
  Serious: Yes (Death, Hospitalization, Other)
  Sender: TAKEDA
  Company Number: CA-TAKEDA-2021TUS060695

PATIENT
  Age: 72 Year
  Sex: Female

DRUGS (19)
  1. HUMAN IMMUNOGLOBULIN G [Suspect]
     Active Substance: HUMAN IMMUNOGLOBULIN G
     Indication: Primary immunodeficiency syndrome
  2. HUMAN IMMUNOGLOBULIN G [Suspect]
     Active Substance: HUMAN IMMUNOGLOBULIN G
     Dosage: 15 GRAM, 1/WEEK
  3. HUMAN IMMUNOGLOBULIN G [Suspect]
     Active Substance: HUMAN IMMUNOGLOBULIN G
     Dosage: 40 GRAM, 1/WEEK
  4. HUMAN IMMUNOGLOBULIN G [Suspect]
     Active Substance: HUMAN IMMUNOGLOBULIN G
  5. HUMAN IMMUNOGLOBULIN G [Suspect]
     Active Substance: HUMAN IMMUNOGLOBULIN G
     Dosage: 15 GRAM, 1/WEEK
  6. HUMAN IMMUNOGLOBULIN G [Suspect]
     Active Substance: HUMAN IMMUNOGLOBULIN G
     Dosage: 7 GRAM, 1/WEEK
  7. HUMAN IMMUNOGLOBULIN G [Suspect]
     Active Substance: HUMAN IMMUNOGLOBULIN G
     Dosage: 7 GRAM, 1/WEEK
  8. AZITHROMYCIN [Concomitant]
     Active Substance: AZITHROMYCIN
  9. SYMBICORT [Concomitant]
     Active Substance: BUDESONIDE\FORMOTEROL FUMARATE DIHYDRATE
  10. GABAPENTIN [Concomitant]
     Active Substance: GABAPENTIN
  11. GAMMAGARD LIQUID [Concomitant]
     Active Substance: HUMAN IMMUNOGLOBULIN G
     Dates: start: 20200331, end: 20200331
  12. APIXABAN [Concomitant]
     Active Substance: APIXABAN
  13. PREMARIN [Concomitant]
     Active Substance: ESTROGENS, CONJUGATED
  14. HYDROXYCHLOROQUINE [Concomitant]
     Active Substance: HYDROXYCHLOROQUINE
  15. MIDODRINE [Concomitant]
     Active Substance: MIDODRINE
  16. MIRTAZAPINE [Concomitant]
     Active Substance: MIRTAZAPINE
  17. MORPHINE SULFATE [Concomitant]
     Active Substance: MORPHINE SULFATE
  18. PANTOPRAZOLE [Concomitant]
     Active Substance: PANTOPRAZOLE
  19. SPIRONOLACTONE [Concomitant]
     Active Substance: SPIRONOLACTONE

REACTIONS (22)
  - Death [Fatal]
  - Duodenal ulcer haemorrhage [Unknown]
  - Cataract [Unknown]
  - Bronchiectasis [Unknown]
  - Pneumonia [Unknown]
  - Lower respiratory tract infection [Unknown]
  - Lymphoedema [Recovering/Resolving]
  - Fluid retention [Unknown]
  - Bacterial infection [Recovered/Resolved]
  - Gastrointestinal disorder [Unknown]
  - Weight decreased [Unknown]
  - Malnutrition [Unknown]
  - Product dose omission issue [Unknown]
  - Weight increased [Unknown]
  - Gait inability [Unknown]
  - Productive cough [Unknown]
  - Product use complaint [Unknown]
  - Weight decreased [Unknown]
  - Dyspnoea exertional [Not Recovered/Not Resolved]
  - Asthenia [Unknown]
  - Feeding disorder [Recovering/Resolving]
  - Malabsorption [Recovering/Resolving]

NARRATIVE: CASE EVENT DATE: 20210925
